FAERS Safety Report 16601506 (Version 2)
Quarter: 2019Q3

REPORT INFORMATION
  Report Type: Spontaneous
  Country: US (occurrence: US)
  Receive Date: 20190720
  Receipt Date: 20190925
  Transmission Date: 20191004
  Serious: No
  Sender: FDA-Public Use
  Company Number: US-ALKERMES INC.-ALK-2019-003750

PATIENT
  Sex: Male

DRUGS (2)
  1. TYLENOL [Concomitant]
     Active Substance: ACETAMINOPHEN
     Indication: MATERNAL EXPOSURE TIMING UNSPECIFIED
     Dosage: UNK
     Route: 064
  2. VIVITROL [Suspect]
     Active Substance: NALTREXONE
     Indication: MATERNAL EXPOSURE TIMING UNSPECIFIED
     Dosage: 380 MG, QMO
     Route: 064
     Dates: start: 20190624

REACTIONS (1)
  - Head circumference abnormal [Unknown]

NARRATIVE: CASE EVENT DATE: 2019
